FAERS Safety Report 8603565-9 (Version None)
Quarter: 2012Q3

REPORT INFORMATION
  Report Type: 
  Country: None (occurrence: None)
  Receive Date: 20120817
  Receipt Date: 20120816
  Transmission Date: 20120928
  Serious: Yes (Death)
  Sender: FDA-Public Use
  Company Number: PHHY2012GB070939

PATIENT
  Age: 12 Year
  Sex: Female

DRUGS (4)
  1. DIHYDROCODEINE BITARTRATE INJ [Suspect]
  2. AMITRIPTYLINE HCL [Suspect]
  3. CITALOPRAM HYDROBROMIDE [Suspect]
  4. ACETAMINOPHEN [Suspect]

REACTIONS (1)
  - TOXICITY TO VARIOUS AGENTS [None]
